FAERS Safety Report 24685849 (Version 3)
Quarter: 2025Q3

REPORT INFORMATION
  Report Type: Report from Study
  Country: US (occurrence: US)
  Receive Date: 20241202
  Receipt Date: 20250829
  Transmission Date: 20251021
  Serious: Yes (Life-Threatening)
  Sender: BLUEBIRD BIO
  Company Number: US-BLUEBIRD BIO-US-BBB-24-00060

PATIENT
  Age: 19 Year
  Sex: Male
  Weight: 52.6 kg

DRUGS (68)
  1. ZYNTEGLO [Suspect]
     Active Substance: BETIBEGLOGENE AUTOTEMCEL
     Indication: Thalassaemia beta
     Route: 042
     Dates: start: 20240610, end: 20240610
  2. BUSULFAN [Concomitant]
     Active Substance: BUSULFAN
     Indication: Bone marrow conditioning regimen
     Dosage: 3.2 MG/KG, QD
     Route: 042
     Dates: start: 20240604, end: 20240607
  3. MOZOBIL [Concomitant]
     Active Substance: PLERIXAFOR
     Indication: Haematopoietic stem cell mobilisation
  4. GRANULOCYTE COLONY-STIMULATING FACTOR NOS [Concomitant]
     Active Substance: GRANULOCYTE COLONY-STIMULATING FACTOR NOS
     Indication: Haematopoietic stem cell mobilisation
  5. FILGRASTIM [Concomitant]
     Active Substance: FILGRASTIM
     Indication: Haematopoietic stem cell mobilisation
     Route: 065
     Dates: start: 20240119, end: 20240122
  6. FLUCONAZOLE [Concomitant]
     Active Substance: FLUCONAZOLE
     Indication: Product used for unknown indication
     Dosage: 316 MILLIGRAM, QD
     Route: 042
     Dates: start: 20240603, end: 20240701
  7. ALUMINUM HYDROXIDE\DIMETHICONE\MAGNESIUM HYDROXIDE [Concomitant]
     Active Substance: ALUMINUM HYDROXIDE\DIMETHICONE\MAGNESIUM HYDROXIDE
     Indication: Product used for unknown indication
     Dosage: 5 MILLILITER, TID, PRN
     Route: 048
     Dates: start: 20240603, end: 20240723
  8. ONDANSETRON [Concomitant]
     Active Substance: ONDANSETRON
     Indication: Product used for unknown indication
     Dosage: 8 MILLIGRAM, Q8H
     Route: 042
     Dates: start: 20240604, end: 20240612
  9. ONDANSETRON [Concomitant]
     Active Substance: ONDANSETRON
     Dosage: 5.4 MILLIGRAM, Q8H PRN
     Route: 042
     Dates: start: 20240616, end: 20240619
  10. ONDANSETRON [Concomitant]
     Active Substance: ONDANSETRON
     Dosage: 5.4 MILLIGRAM, Q8H PRN
     Route: 042
     Dates: start: 20240619, end: 20240702
  11. APREPITANT [Concomitant]
     Active Substance: APREPITANT
     Indication: Product used for unknown indication
     Route: 048
     Dates: start: 20240604, end: 20240604
  12. APREPITANT [Concomitant]
     Active Substance: APREPITANT
     Dosage: 80 MILLIGRAM, QD
     Route: 048
     Dates: start: 20240604, end: 20240606
  13. PROCHLORPERAZINE [Concomitant]
     Active Substance: PROCHLORPERAZINE
     Indication: Product used for unknown indication
     Dosage: 5 MILLIGRAM, Q6H, PRN
     Route: 042
     Dates: start: 20240603, end: 20240627
  14. DIPHENHYDRAMINE [Concomitant]
     Active Substance: DIPHENHYDRAMINE
     Indication: Product used for unknown indication
     Dosage: 50 MILLIGRAM, Q6H PRN
     Route: 042
     Dates: start: 20240603, end: 20240622
  15. DIPHENHYDRAMINE [Concomitant]
     Active Substance: DIPHENHYDRAMINE
     Route: 042
     Dates: start: 20240610, end: 20240610
  16. URSODIOL [Concomitant]
     Active Substance: URSODIOL
     Indication: Prophylaxis
     Dosage: 300 MILLIGRAM, BID
     Route: 048
     Dates: start: 20240603, end: 20240620
  17. URSODIOL [Concomitant]
     Active Substance: URSODIOL
     Indication: Venoocclusive disease
     Dosage: 300 MILLIGRAM, BID
     Route: 048
     Dates: start: 20240620, end: 20240621
  18. LEVETIRACETAM [Concomitant]
     Active Substance: LEVETIRACETAM
     Indication: Product used for unknown indication
     Dosage: 500 MILLIGRAM, BID
     Route: 048
     Dates: start: 20240603, end: 20240609
  19. COTRIMOXAZOLE [Concomitant]
     Active Substance: SULFAMETHOXAZOLE\TRIMETHOPRIM
     Indication: Product used for unknown indication
     Dosage: 140 MILLIGRAM, BID
     Route: 048
     Dates: start: 20240603, end: 20240608
  20. CETIRIZINE [Concomitant]
     Active Substance: CETIRIZINE HYDROCHLORIDE
     Indication: Product used for unknown indication
     Route: 048
     Dates: start: 20240603, end: 20240723
  21. CHOLECALCIFEROL [Concomitant]
     Active Substance: CHOLECALCIFEROL
     Indication: Product used for unknown indication
     Dosage: 250 MICROGRAM, WEEKLY
     Route: 048
     Dates: start: 20240604, end: 20240614
  22. CHOLECALCIFEROL [Concomitant]
     Active Substance: CHOLECALCIFEROL
     Dosage: 50 MICROGRAM, WEEKLY
     Route: 048
     Dates: start: 20240614, end: 20240622
  23. OXYCODONE [Concomitant]
     Active Substance: OXYCODONE
     Indication: Product used for unknown indication
     Route: 048
     Dates: start: 20240603, end: 20240603
  24. OXYCODONE [Concomitant]
     Active Substance: OXYCODONE
     Dosage: 5 MILLIGRAM, Q6H, PRN
     Route: 048
     Dates: start: 20240603, end: 20240616
  25. OXYCODONE [Concomitant]
     Active Substance: OXYCODONE
     Dosage: 5 MILLIGRAM, Q6H
     Route: 048
     Dates: start: 20240616, end: 20240617
  26. OXYCODONE [Concomitant]
     Active Substance: OXYCODONE
     Dosage: 10 MILLIGRAM, Q6H
     Route: 048
     Dates: start: 20240617, end: 20240617
  27. OXYCODONE [Concomitant]
     Active Substance: OXYCODONE
     Dosage: 10 MILLIGRAM, Q6H
     Route: 048
     Dates: start: 20240617, end: 20240618
  28. DEXTROSE + NAK [Concomitant]
     Indication: Product used for unknown indication
     Route: 042
     Dates: start: 20240603, end: 20240610
  29. DEXTROSE + NAK [Concomitant]
     Route: 042
     Dates: start: 20240610, end: 20240620
  30. DEXTROSE + NAK [Concomitant]
     Route: 042
     Dates: start: 20240610, end: 20240622
  31. DEXTROSE + NAK [Concomitant]
     Route: 042
     Dates: start: 20240620, end: 20240722
  32. ACETAMINOPHEN [Concomitant]
     Active Substance: ACETAMINOPHEN
     Indication: Product used for unknown indication
     Dosage: 650 MILLIGRAM, Q4H PRN
     Route: 048
     Dates: start: 20240603, end: 20240620
  33. ACETAMINOPHEN [Concomitant]
     Active Substance: ACETAMINOPHEN
     Dosage: 1000 MILLIGRAM, Q6H
     Route: 042
     Dates: start: 20240620, end: 20240621
  34. ACETAMINOPHEN [Concomitant]
     Active Substance: ACETAMINOPHEN
     Route: 048
     Dates: start: 20240610, end: 20240610
  35. LORAZEPAM [Concomitant]
     Active Substance: LORAZEPAM
     Indication: Product used for unknown indication
     Dosage: 1 MILLIGRAM, Q6H PRN
     Route: 042
     Dates: start: 20240603, end: 20240620
  36. LORAZEPAM [Concomitant]
     Active Substance: LORAZEPAM
     Route: 042
     Dates: start: 20240620, end: 20240620
  37. LORAZEPAM [Concomitant]
     Active Substance: LORAZEPAM
     Dosage: 1 MILLIGRAM, Q6H PRN
     Route: 042
     Dates: start: 20240620, end: 20240624
  38. CHLORHEXIDINE [Concomitant]
     Active Substance: CHLORHEXIDINE
     Indication: Product used for unknown indication
     Dosage: 15 MILLILITER, TID, SWISH + SPIT
     Route: 048
     Dates: start: 20240603, end: 20240723
  39. PHYTONADIONE [Concomitant]
     Active Substance: PHYTONADIONE
     Indication: Product used for unknown indication
     Route: 048
     Dates: start: 20240605, end: 20240623
  40. LEVOFLOXACIN [Concomitant]
     Active Substance: LEVOFLOXACIN
     Indication: Product used for unknown indication
     Dosage: 750 MILLIGRAM, QD
     Route: 048
     Dates: start: 20240608, end: 20240618
  41. LEVOFLOXACIN [Concomitant]
     Active Substance: LEVOFLOXACIN
     Dosage: 750 MILLIGRAM, QD
     Route: 048
     Dates: start: 20240618, end: 20240620
  42. SODIUM CHLORIDE [Concomitant]
     Active Substance: SODIUM CHLORIDE
     Indication: Product used for unknown indication
     Dates: start: 20240607, end: 20240610
  43. ASCORBIC ACID [Concomitant]
     Active Substance: ASCORBIC ACID
     Indication: Product used for unknown indication
     Dosage: 250 MILLIGRAM, QD
     Route: 048
     Dates: start: 20240614, end: 20240622
  44. MORPHINE [Concomitant]
     Active Substance: MORPHINE
     Indication: Product used for unknown indication
     Dosage: 2 MILLIGRAM, Q4H
     Route: 042
     Dates: start: 20240615, end: 20240618
  45. MORPHINE [Concomitant]
     Active Substance: MORPHINE
     Dosage: 2 MILLIGRAM, Q4H
     Route: 042
     Dates: start: 20240618, end: 20240619
  46. MORPHINE [Concomitant]
     Active Substance: MORPHINE
     Route: 042
     Dates: start: 20240618, end: 20240619
  47. MORPHINE [Concomitant]
     Active Substance: MORPHINE
     Dosage: 1 MILLIGRAM, Q4H
     Route: 042
     Dates: start: 20240619, end: 20240619
  48. MORPHINE [Concomitant]
     Active Substance: MORPHINE
     Route: 042
     Dates: start: 20240619, end: 20240619
  49. MORPHINE [Concomitant]
     Active Substance: MORPHINE
     Route: 042
     Dates: start: 20240619, end: 20240619
  50. MORPHINE [Concomitant]
     Active Substance: MORPHINE
     Route: 042
     Dates: start: 20240619, end: 20240619
  51. MORPHINE [Concomitant]
     Active Substance: MORPHINE
     Route: 042
     Dates: start: 20240620, end: 20240620
  52. MORPHINE [Concomitant]
     Active Substance: MORPHINE
     Route: 042
     Dates: start: 20240620, end: 20240620
  53. MORPHINE [Concomitant]
     Active Substance: MORPHINE
     Route: 042
     Dates: start: 20240620, end: 20240620
  54. MORPHINE [Concomitant]
     Active Substance: MORPHINE
     Route: 042
     Dates: start: 20240620, end: 20240620
  55. MORPHINE [Concomitant]
     Active Substance: MORPHINE
     Route: 042
     Dates: start: 20240620, end: 20240621
  56. AMINO ACIDS\CARBOHYDRATES\MINERALS\VITAMINS [Concomitant]
     Active Substance: AMINO ACIDS\CARBOHYDRATES\MINERALS\VITAMINS
     Indication: Product used for unknown indication
     Route: 042
     Dates: start: 20240618, end: 20240619
  57. AMINO ACIDS\CARBOHYDRATES\MINERALS\VITAMINS [Concomitant]
     Active Substance: AMINO ACIDS\CARBOHYDRATES\MINERALS\VITAMINS
     Route: 042
     Dates: start: 20240619, end: 20240620
  58. AMINO ACIDS\CARBOHYDRATES\MINERALS\VITAMINS [Concomitant]
     Active Substance: AMINO ACIDS\CARBOHYDRATES\MINERALS\VITAMINS
     Route: 042
     Dates: start: 20240620, end: 20240621
  59. SOYBEAN OIL [Concomitant]
     Active Substance: SOYBEAN OIL
     Indication: Product used for unknown indication
     Route: 042
     Dates: start: 20240618, end: 20240619
  60. SOYBEAN OIL [Concomitant]
     Active Substance: SOYBEAN OIL
     Route: 042
     Dates: start: 20240619, end: 20240620
  61. SOYBEAN OIL [Concomitant]
     Active Substance: SOYBEAN OIL
     Route: 042
     Dates: start: 20240620, end: 20240621
  62. PLATELETS [Concomitant]
     Active Substance: HUMAN PLATELET, ALLOGENIC
     Indication: Product used for unknown indication
     Route: 042
     Dates: start: 20240618, end: 20240619
  63. PLATELETS [Concomitant]
     Active Substance: HUMAN PLATELET, ALLOGENIC
     Route: 042
     Dates: start: 20240618, end: 20240619
  64. PLATELETS [Concomitant]
     Active Substance: HUMAN PLATELET, ALLOGENIC
     Route: 042
     Dates: start: 20240620
  65. PANTOPRAZOLE [Concomitant]
     Active Substance: PANTOPRAZOLE
     Indication: Product used for unknown indication
     Dosage: 20 MILLIGRAM, QD
     Route: 042
     Dates: start: 20240619, end: 20240624
  66. FUROSEMIDE [Concomitant]
     Active Substance: FUROSEMIDE
     Indication: Product used for unknown indication
     Route: 042
     Dates: start: 20240620, end: 20240620
  67. CEFEPIME [Concomitant]
     Active Substance: CEFEPIME HYDROCHLORIDE
     Indication: Product used for unknown indication
     Dosage: 2000 MILLIGRAM, Q8H
     Route: 042
     Dates: start: 20240620, end: 20240713
  68. VANCOMYCIN [Concomitant]
     Active Substance: VANCOMYCIN
     Indication: Product used for unknown indication
     Dosage: 500 MILLIGRAM, Q6H
     Route: 042
     Dates: start: 20240620, end: 20240621

REACTIONS (5)
  - Venoocclusive liver disease [Recovered/Resolved]
  - Haematemesis [Recovered/Resolved]
  - Conjunctival haemorrhage [Recovered/Resolved]
  - Gingival bleeding [Recovered/Resolved]
  - Epistaxis [Recovered/Resolved]

NARRATIVE: CASE EVENT DATE: 20240621
